FAERS Safety Report 8609671-7 (Version None)
Quarter: 2012Q3

REPORT INFORMATION
  Report Type: 
  Country: None (occurrence: None)
  Receive Date: 20120821
  Receipt Date: 20120814
  Transmission Date: 20120928
  Serious: Yes (Other)
  Sender: FDA-Public Use
  Company Number: PHHY2012US070628

PATIENT
  Age: 53 Year
  Sex: Male

DRUGS (1)
  1. METRONIDAZOLE [Suspect]

REACTIONS (3)
  - OROMANDIBULAR DYSTONIA [None]
  - UNRESPONSIVE TO STIMULI [None]
  - ENCEPHALOPATHY [None]
